FAERS Safety Report 9334295 (Version 1)
Quarter: 2013Q2

REPORT INFORMATION
  Report Type: Spontaneous
  Country: US (occurrence: US)
  Receive Date: 20130606
  Receipt Date: 20130606
  Transmission Date: 20140414
  Serious: Yes (Other)
  Sender: FDA-Public Use
  Company Number: US-009507513-1305USA017098

PATIENT
  Sex: 0

DRUGS (3)
  1. FOSAMAX [Suspect]
     Dosage: UNK
     Route: 048
     Dates: start: 1999, end: 2011
  2. FOSAMAX PLUS D [Suspect]
     Dosage: UNK
     Route: 048
     Dates: end: 2011
  3. ALENDRONATE SODIUM [Suspect]
     Dosage: UNK
     Dates: end: 2011

REACTIONS (1)
  - Femur fracture [Unknown]
